FAERS Safety Report 5300056-8 (Version None)
Quarter: 2007Q2

REPORT INFORMATION
  Report Type: 
  Country: None (occurrence: None)
  Receive Date: 20070410
  Receipt Date: 20070330
  Transmission Date: 20071010
  Serious: Yes (Hospitalization)
  Sender: FDA-Public Use
  Company Number: B0453048A

PATIENT
  Age: 43 Year
  Sex: Female

DRUGS (1)
  1. AUGMENTIN '250' [Suspect]
     Indication: ACUTE TONSILLITIS
     Dosage: 1 GRAM (S) TWICE PER DAY ORAL
     Route: 048
     Dates: start: 20061222, end: 20061222

REACTIONS (3)
  - ANGIOEDEMA [None]
  - BLOOD PRESSURE DECREASED [None]
  - URTICARIA [None]
